FAERS Safety Report 6956050-4 (Version None)
Quarter: 2010Q3

REPORT INFORMATION
  Report Type: 
  Country: None (occurrence: None)
  Receive Date: 20100830
  Receipt Date: 20100825
  Transmission Date: 20110219
  Serious: Yes (Hospitalization)
  Sender: FDA-Public Use
  Company Number: GXKR2010DE09510

PATIENT
  Sex: Female

DRUGS (1)
  1. METOPROLOL TARTRATE AND HYDROCHLOROTHIAZIDE [Suspect]
     Dosage: UNK
     Route: 048

REACTIONS (4)
  - ABDOMINAL PAIN [None]
  - LOSS OF CONSCIOUSNESS [None]
  - NAUSEA [None]
  - SPEECH DISORDER [None]
